FAERS Safety Report 6249047-3 (Version None)
Quarter: 2009Q2

REPORT INFORMATION
  Report Type: 
  Country: None (occurrence: None)
  Receive Date: 20090629
  Receipt Date: 20090618
  Transmission Date: 20091009
  Serious: Yes (Other)
  Sender: FDA-Public Use
  Company Number: RO-JNJFOC-20090607455

PATIENT
  Sex: Male
  Weight: 73 kg

DRUGS (2)
  1. IMODIUM [Suspect]
     Indication: ENTEROCOLITIS
     Route: 048
  2. PARACETAMOL [Concomitant]
     Route: 048

REACTIONS (2)
  - ANGIOEDEMA [None]
  - URTICARIA [None]
